FAERS Safety Report 8461694-7 (Version None)
Quarter: 2012Q2

REPORT INFORMATION
  Report Type: 
  Country: None (occurrence: None)
  Receive Date: 20120625
  Receipt Date: 20120611
  Transmission Date: 20120825
  Serious: Yes (Other)
  Sender: FDA-Public Use
  Company Number: ES-JNJFOC-20120605903

PATIENT

DRUGS (9)
  1. CYCLOSPORINE [Suspect]
     Dosage: DOSE: 3-4 (UNITS UNSPECIFIED)
     Route: 065
     Dates: end: 20040101
  2. CYCLOSPORINE [Suspect]
     Dosage: DOSE:1.5 (DOSE UNSPECIFIED)
     Route: 065
  3. METHOTREXATE [Suspect]
     Route: 065
     Dates: start: 20060101
  4. REMICADE [Suspect]
     Indication: PSORIASIS
     Route: 042
     Dates: end: 20050101
  5. ETANERCEPT [Suspect]
     Indication: PSORIASIS
     Dosage: DOSE: 50 (UNITS UNSPECIFIED)
     Route: 065
     Dates: start: 20050101, end: 20060101
  6. REMICADE [Suspect]
     Route: 042
  7. CYCLOSPORINE [Suspect]
     Indication: PSORIASIS
     Dosage: DOSE: 1.5 (UNITS UNSPECIFIED)
     Route: 065
     Dates: end: 20080101
  8. CYCLOSPORINE [Suspect]
     Dosage: DOSE: 0.8 (UNITS UNSPECIFIED)
     Route: 065
  9. METHOTREXATE [Suspect]
     Indication: PSORIASIS
     Route: 065
     Dates: end: 20040101

REACTIONS (2)
  - PAPULE [None]
  - PNEUMONIA LEGIONELLA [None]
